FAERS Safety Report 20054768 (Version 1)
Quarter: 2021Q4

REPORT INFORMATION
  Report Type: Spontaneous
  Country: US (occurrence: None)
  Receive Date: 20211110
  Receipt Date: 20211110
  Transmission Date: 20220304
  Serious: No
  Sender: FDA-Public Use
  Company Number: None

PATIENT
  Age: 49 Year
  Sex: Female
  Weight: 113 kg

DRUGS (2)
  1. PERTUZUMAB [Suspect]
     Active Substance: PERTUZUMAB
     Indication: Product used for unknown indication
     Dates: end: 20210930
  2. HERCEPTIN [Suspect]
     Active Substance: TRASTUZUMAB
     Indication: Product used for unknown indication
     Dates: end: 20210930

REACTIONS (10)
  - Breast pain [None]
  - Breast swelling [None]
  - Pyrexia [None]
  - Breast disorder [None]
  - Feeling hot [None]
  - Erythema [None]
  - Implant site extravasation [None]
  - Breast complication associated with device [None]
  - Culture positive [None]
  - Staphylococcal infection [None]

NARRATIVE: CASE EVENT DATE: 20211002
